FAERS Safety Report 5110297-0 (Version None)
Quarter: 2006Q3

REPORT INFORMATION
  Report Type: 
  Country: None (occurrence: None)
  Receive Date: 20060921
  Receipt Date: 20060612
  Transmission Date: 20061208
  Serious: Yes (Other)
  Sender: FDA-Public Use
  Company Number: 2006AC01109

PATIENT
  Age: 54 Year
  Sex: Female

DRUGS (7)
  1. ATENOLOL [Suspect]
     Indication: HYPERTENSION
     Dosage: TAPERED TO DISCONTINUATION
     Route: 048
  2. MULTI-VITAMIN [Concomitant]
  3. VITAMIN B-12 [Concomitant]
  4. CALCIUM GLUCONATE [Concomitant]
  5. GLUCOSAMINE [Concomitant]
  6. ASCORBIC ACID [Concomitant]
  7. ASPIRIN [Concomitant]

REACTIONS (8)
  - BREAST ENLARGEMENT [None]
  - BREAST PAIN [None]
  - BREAST SWELLING [None]
  - BREAST TENDERNESS [None]
  - ERYTHEMA [None]
  - FEELING ABNORMAL [None]
  - INSOMNIA [None]
  - SOMNOLENCE [None]
